APPROVED DRUG PRODUCT: CLEMASTINE FUMARATE
Active Ingredient: CLEMASTINE FUMARATE
Strength: 1.34MG
Dosage Form/Route: TABLET;ORAL
Application: A074512 | Product #001
Applicant: L PERRIGO CO
Approved: Nov 22, 1995 | RLD: No | RS: No | Type: DISCN